FAERS Safety Report 8305280-8 (Version None)
Quarter: 2012Q1

REPORT INFORMATION
  Report Type: 
  Country: None (occurrence: None)
  Receive Date: 20120326
  Receipt Date: 20120131
  Transmission Date: 20120608
  Serious: Yes (Other)
  Sender: FDA-Public Use
  Company Number: PHEH2011US009729

PATIENT
  Age: 24 Year
  Sex: Male
  Weight: 100.5 kg

DRUGS (8)
  1. ALLOPURINOL [Concomitant]
  2. DIAZEPAM [Concomitant]
  3. XANAX [Concomitant]
  4. TASIGNA [Suspect]
     Indication: CHRONIC MYELOID LEUKAEMIA
     Dosage: 300 MG, BID, ORAL
     Route: 048
     Dates: start: 20111011
  5. TASIGNA [Suspect]
     Indication: CHRONIC MYELOID LEUKAEMIA
     Dosage: 450 MG, DAILY, ORAL, 300 MG, BID, ORAL
     Route: 048
     Dates: start: 20111121
  6. SYNTHROID [Concomitant]
  7. TASIGNA [Suspect]
     Indication: CHRONIC MYELOID LEUKAEMIA
     Dosage: 300 MG, BID, ORAL, 300 MG, BID, ORAL
     Route: 048
     Dates: start: 20111029
  8. TASIGNA [Suspect]
     Indication: CHRONIC MYELOID LEUKAEMIA
     Dosage: 300 MG, BID, ORAL, 300 MG, BID, ORAL
     Route: 048
     Dates: start: 20111101, end: 20111109

REACTIONS (5)
  - ASPARTATE AMINOTRANSFERASE INCREASED [None]
  - NAUSEA [None]
  - LIVER FUNCTION TEST ABNORMAL [None]
  - FEELING ABNORMAL [None]
  - ALANINE AMINOTRANSFERASE INCREASED [None]
